FAERS Safety Report 4307539-8 (Version None)
Quarter: 2004Q1

REPORT INFORMATION
  Report Type: 
  Country: None (occurrence: None)
  Receive Date: 20040226
  Receipt Date: 20040212
  Transmission Date: 20041129
  Serious: Yes (Hospitalization, Other)
  Sender: FDA-Public Use
  Company Number: 2004009909

PATIENT
  Age: 59 Year
  Sex: Male

DRUGS (3)
  1. NEURONTIN [Suspect]
     Indication: ILL-DEFINED DISORDER
     Dosage: 600 MG (TID)
  2. OXYCOCET (PARACETAMOL, OXYCODONE HYDROCHLORIDE) [Suspect]
     Indication: ILL-DEFINED DISORDER
  3. ALL OTHER THERAPEUTIC PRODUCTS [Suspect]
     Indication: ILL-DEFINED DISORDER

REACTIONS (4)
  - BLOOD CREATININE INCREASED [None]
  - MENTAL STATUS CHANGES [None]
  - MYOCLONUS [None]
  - SOMNOLENCE [None]
